FAERS Safety Report 4946251-9 (Version None)
Quarter: 2006Q1

REPORT INFORMATION
  Report Type: 
  Country: None (occurrence: None)
  Receive Date: 20060317
  Receipt Date: 20060310
  Transmission Date: 20060701
  Serious: Yes (Death, Hospitalization)
  Sender: FDA-Public Use
  Company Number: US-SANOFI-SYNTHELABO-A03200601312

PATIENT
  Sex: Male
  Weight: 39.91 kg

DRUGS (19)
  1. PLAVIX [Suspect]
     Indication: HYPERTENSION
     Route: 048
  2. COREG [Concomitant]
     Dosage: UNK
     Route: 065
  3. ALTACE [Concomitant]
     Dosage: UNK
     Route: 065
  4. ZOCOR [Concomitant]
     Dosage: UNK
     Route: 065
  5. FUROSEMIDE [Concomitant]
     Dosage: UNK
     Route: 065
  6. DIGOXIN [Concomitant]
     Dosage: UNK
     Route: 065
  7. ISOSORBIDE [Concomitant]
     Dosage: UNK
     Route: 065
  8. POTASSIUM [Concomitant]
     Dosage: UNK
     Route: 065
  9. PANCREASE [Concomitant]
     Dosage: UNK
     Route: 065
  10. LORAZEPAM [Concomitant]
     Dosage: UNK
     Route: 065
  11. PRILOSEC [Concomitant]
     Dosage: UNK
     Route: 065
  12. METOCLOPRAMIDE [Concomitant]
     Dosage: UNK
     Route: 065
  13. LOPERAMIDE [Concomitant]
     Dosage: UNK
     Route: 065
  14. PROMETHAZINE [Concomitant]
     Dosage: UNK
     Route: 065
  15. SONATA [Concomitant]
     Dosage: UNK
     Route: 048
  16. SPIRIVA [Concomitant]
     Dosage: UNK
     Route: 065
  17. BUDESONIDE [Concomitant]
     Dosage: UNK
     Route: 065
  18. XOPENEX [Concomitant]
     Dosage: UNK
     Route: 048
  19. OXYGEN [Concomitant]
     Dosage: UNK
     Route: 045

REACTIONS (1)
  - CHRONIC OBSTRUCTIVE PULMONARY DISEASE [None]
